FAERS Safety Report 19293144 (Version 1)
Quarter: 2021Q2

REPORT INFORMATION
  Report Type: Spontaneous
  Country: US (occurrence: US)
  Receive Date: 20210523
  Receipt Date: 20210523
  Transmission Date: 20210717
  Serious: No
  Sender: FDA-Public Use
  Company Number: None

PATIENT
  Age: 74 Year
  Sex: Male
  Weight: 117.9 kg

DRUGS (22)
  1. BENADRYL ALLERGY [Concomitant]
     Active Substance: DIPHENHYDRAMINE HYDROCHLORIDE
  2. DILAUDID [Concomitant]
     Active Substance: HYDROMORPHONE HYDROCHLORIDE
  3. LASIX [Concomitant]
     Active Substance: FUROSEMIDE
  4. LISINOPRIL. [Concomitant]
     Active Substance: LISINOPRIL
  5. LOMOTIL [Concomitant]
     Active Substance: ATROPINE SULFATE\DIPHENOXYLATE HYDROCHLORIDE
  6. ATORVASTATIN CALCIUM. [Concomitant]
     Active Substance: ATORVASTATIN CALCIUM
  7. COLCHICINE. [Concomitant]
     Active Substance: COLCHICINE
  8. DOXYCYCLINE HYCLATE. [Concomitant]
     Active Substance: DOXYCYCLINE HYCLATE
  9. DULCOLAX NOS [Concomitant]
     Active Substance: BISACODYL OR DOCUSATE SODIUM
  10. LEXAPRO [Concomitant]
     Active Substance: ESCITALOPRAM OXALATE
  11. ACETAMINOPHEN. [Concomitant]
     Active Substance: ACETAMINOPHEN
  12. CARVEDILOL. [Concomitant]
     Active Substance: CARVEDILOL
  13. FINASTERIDE. [Concomitant]
     Active Substance: FINASTERIDE
  14. MAGNESIUM OXIDE. [Concomitant]
     Active Substance: MAGNESIUM OXIDE
  15. AMOXICILLIN. [Concomitant]
     Active Substance: AMOXICILLIN
  16. LORAZEPAM. [Concomitant]
     Active Substance: LORAZEPAM
  17. NITROSTAT [Concomitant]
     Active Substance: NITROGLYCERIN
  18. ALUMINUM?MAGNESIUM?SIMETHICONE [Concomitant]
  19. NYSTATIN. [Concomitant]
     Active Substance: NYSTATIN
  20. CAPECITABINE. [Suspect]
     Active Substance: CAPECITABINE
     Indication: COLON CANCER
     Route: 048
     Dates: start: 20210505, end: 20210513
  21. DEXAMETHASONE. [Concomitant]
     Active Substance: DEXAMETHASONE
  22. ISOSORBIDE MONONITRATE ER [Concomitant]
     Active Substance: ISOSORBIDE MONONITRATE

REACTIONS (1)
  - Therapy non-responder [None]

NARRATIVE: CASE EVENT DATE: 20210513
